FAERS Safety Report 9232645 (Version 1)
Quarter: 2013Q1

REPORT INFORMATION
  Report Type: Spontaneous
  Country: US (occurrence: None)
  Receive Date: 20121031
  Receipt Date: 20121031
  Transmission Date: 20140127
  Serious: No
  Sender: FDA-Public Use
  Company Number: PHEH2012US013174

PATIENT
  Age: 53 Year
  Sex: Female
  Weight: 90.7 kg

DRUGS (5)
  1. GILENYA (FTY) CAPSULE, 0.5MG [Suspect]
     Indication: MULTIPLE SCLEROSIS
     Route: 048
     Dates: start: 20120616
  2. ADDERALL XR (AMFETAMINE ASPARTATE, AMEFETAMINE SULFATE, DEXAMEFETAMINE SACCHARATE, DEXAMFETAMINE SULFATE) [Concomitant]
  3. PERIACTIN (CYPROHEPTADINE HYDROCHLORIDE) [Concomitant]
  4. NORVASC (AMLODIPINE BESILATE) [Concomitant]
  5. AMITRIPTYLINE (AMITRIPTYLINE) [Concomitant]

REACTIONS (1)
  - Hypoaesthesia [None]
